FAERS Safety Report 10600246 (Version 6)
Quarter: 2015Q4

REPORT INFORMATION
  Report Type: Spontaneous
  Country: US (occurrence: US)
  Receive Date: 20141122
  Receipt Date: 20151208
  Transmission Date: 20160304
  Serious: Yes (Hospitalization, Other)
  Sender: FDA-Public Use
  Company Number: US-DSJP-DSU-2014-120407

PATIENT

DRUGS (9)
  1. COUMADIN [Concomitant]
     Active Substance: WARFARIN SODIUM
     Indication: PRODUCT USED FOR UNKNOWN INDICATION
     Dosage: 1 TABLET, BID
     Route: 048
     Dates: start: 201211
  2. BENICAR [Suspect]
     Active Substance: OLMESARTAN MEDOXOMIL
     Dosage: 20 MG, PRN
     Route: 048
     Dates: end: 201206
  3. BENICAR [Suspect]
     Active Substance: OLMESARTAN MEDOXOMIL
     Dosage: 40 MG, QD
     Route: 048
     Dates: start: 2012
  4. BENICAR HCT [Suspect]
     Active Substance: HYDROCHLOROTHIAZIDE\OLMESARTAN MEDOXOMIL
     Indication: PRODUCT USED FOR UNKNOWN INDICATION
     Dosage: UNK
     Route: 048
     Dates: start: 200705, end: 201108
  5. BENICAR [Suspect]
     Active Substance: OLMESARTAN MEDOXOMIL
     Dosage: 40 MG, PRN
     Route: 048
     Dates: start: 201209
  6. BENICAR [Suspect]
     Active Substance: OLMESARTAN MEDOXOMIL
     Indication: HYPERTENSION
     Dosage: 20 MG, QD
     Route: 048
     Dates: start: 201109, end: 201201
  7. LOPRESSOR [Concomitant]
     Active Substance: METOPROLOL TARTRATE
     Dosage: 50 MG, UNK
     Route: 048
     Dates: start: 20130104
  8. LOPRESSOR [Concomitant]
     Active Substance: METOPROLOL TARTRATE
     Indication: PRODUCT USED FOR UNKNOWN INDICATION
     Dosage: 75 MG, BID
     Route: 048
     Dates: start: 20121130
  9. SPIRONOLACTONE. [Concomitant]
     Active Substance: SPIRONOLACTONE
     Indication: PRODUCT USED FOR UNKNOWN INDICATION
     Dosage: 25 MG, QD
     Route: 048
     Dates: start: 20121231

REACTIONS (24)
  - Deep vein thrombosis [Unknown]
  - Palpitations [Recovered/Resolved]
  - Pulmonary embolism [Unknown]
  - Malabsorption [Not Recovered/Not Resolved]
  - Rectal haemorrhage [Unknown]
  - Polyp [Unknown]
  - Hypotension [Unknown]
  - Short-bowel syndrome [Unknown]
  - Suicidal ideation [Recovered/Resolved]
  - Coeliac disease [Unknown]
  - Incorrect dose administered [Recovered/Resolved]
  - Gastrooesophageal reflux disease [Unknown]
  - Depression [Recovered/Resolved]
  - Impaired gastric emptying [Unknown]
  - Ascites [Unknown]
  - Gastrointestinal disorder [Unknown]
  - Anxiety [Recovered/Resolved]
  - Atrial fibrillation [Unknown]
  - Intestinal perforation [Unknown]
  - Irritable bowel syndrome [Unknown]
  - Bacterial test positive [Recovered/Resolved]
  - Generalised oedema [Unknown]
  - Enteritis [Recovered/Resolved]
  - Ileus paralytic [Recovering/Resolving]

NARRATIVE: CASE EVENT DATE: 2011
